FAERS Safety Report 21931296 (Version 1)
Quarter: 2023Q1

REPORT INFORMATION
  Report Type: Spontaneous
  Country: US (occurrence: None)
  Receive Date: 20230130
  Receipt Date: 20230130
  Transmission Date: 20230418
  Serious: No
  Sender: FDA-Public Use
  Company Number: None

PATIENT
  Sex: Female

DRUGS (1)
  1. KESIMPTA [Suspect]
     Active Substance: OFATUMUMAB
     Route: 058

REACTIONS (7)
  - Cough [None]
  - Eye haemorrhage [None]
  - Productive cough [None]
  - Choking [None]
  - Pyrexia [None]
  - Hypertrophy of tongue papillae [None]
  - Therapy interrupted [None]
